FAERS Safety Report 17843936 (Version 1)
Quarter: 2020Q2

REPORT INFORMATION
  Report Type: Spontaneous
  Country: NL (occurrence: NL)
  Receive Date: 20200601
  Receipt Date: 20200601
  Transmission Date: 20200714
  Serious: Yes (Other)
  Sender: FDA-Public Use
  Company Number: NL-BEH-2020117977

PATIENT
  Sex: Male
  Weight: 14 kg

DRUGS (3)
  1. ASCAL [CARBASALATE CALCIUM] [Concomitant]
     Active Substance: CARBASPIRIN CALCIUM
     Dosage: 160 MILLIGRAM (DISPERSIBLE TABLET 4DD 160 MG)
  2. AUGMENTINE [AMOXICILLIN;CLAVULANIC ACID] [Concomitant]
     Active Substance: AMOXICILLIN\CLAVULANIC ACID
     Dosage: 1 DOSAGE FORM, QD (100/10 MG/KG/DAG IV)
     Route: 042
  3. PRIVIGEN [Suspect]
     Active Substance: HUMAN IMMUNOGLOBULIN G
     Indication: KAWASAKI^S DISEASE
     Dosage: 1 DOSAGE FORM (27,5 GRAM IN 24 HRS)
     Route: 065
     Dates: start: 20200418, end: 20200419

REACTIONS (2)
  - Tachypnoea [Recovered/Resolved]
  - Oxygen saturation decreased [Recovered/Resolved]
